FAERS Safety Report 19015993 (Version 7)
Quarter: 2025Q3

REPORT INFORMATION
  Report Type: Spontaneous
  Country: CA (occurrence: CA)
  Receive Date: 20210316
  Receipt Date: 20250711
  Transmission Date: 20251020
  Serious: Yes (Other)
  Sender: Haleon PLC
  Company Number: CA-ALLERGAN-2110282US

PATIENT
  Age: 53 Year
  Sex: Male

DRUGS (635)
  1. DICLOFENAC [Suspect]
     Active Substance: DICLOFENAC
     Indication: Migraine
  2. DICLOFENAC [Suspect]
     Active Substance: DICLOFENAC
     Indication: Product used for unknown indication
  3. NEXIUM 24HR [Suspect]
     Active Substance: ESOMEPRAZOLE MAGNESIUM
     Indication: Product used for unknown indication
     Route: 048
  4. NEXIUM 24HR [Suspect]
     Active Substance: ESOMEPRAZOLE MAGNESIUM
     Route: 048
  5. NEXIUM 24HR [Suspect]
     Active Substance: ESOMEPRAZOLE MAGNESIUM
     Route: 048
  6. NEXIUM 24HR [Suspect]
     Active Substance: ESOMEPRAZOLE MAGNESIUM
     Route: 048
  7. NEXIUM 24HR [Suspect]
     Active Substance: ESOMEPRAZOLE MAGNESIUM
     Route: 048
  8. NEXIUM 24HR [Suspect]
     Active Substance: ESOMEPRAZOLE MAGNESIUM
     Route: 048
  9. NEXIUM 24HR [Suspect]
     Active Substance: ESOMEPRAZOLE MAGNESIUM
     Route: 048
  10. NEXIUM 24HR [Suspect]
     Active Substance: ESOMEPRAZOLE MAGNESIUM
     Route: 048
  11. NEXIUM 24HR [Suspect]
     Active Substance: ESOMEPRAZOLE MAGNESIUM
     Route: 048
  12. NEXIUM 24HR [Suspect]
     Active Substance: ESOMEPRAZOLE MAGNESIUM
     Route: 048
  13. NEXIUM 24HR [Suspect]
     Active Substance: ESOMEPRAZOLE MAGNESIUM
     Route: 048
  14. NEXIUM 24HR [Suspect]
     Active Substance: ESOMEPRAZOLE MAGNESIUM
     Route: 048
  15. NEXIUM 24HR [Suspect]
     Active Substance: ESOMEPRAZOLE MAGNESIUM
     Route: 048
  16. NEXIUM 24HR [Suspect]
     Active Substance: ESOMEPRAZOLE MAGNESIUM
     Route: 048
  17. NEXIUM 24HR [Suspect]
     Active Substance: ESOMEPRAZOLE MAGNESIUM
     Route: 048
  18. NEXIUM 24HR [Suspect]
     Active Substance: ESOMEPRAZOLE MAGNESIUM
     Route: 048
  19. NEXIUM 24HR [Suspect]
     Active Substance: ESOMEPRAZOLE MAGNESIUM
     Route: 048
  20. NEXIUM 24HR [Suspect]
     Active Substance: ESOMEPRAZOLE MAGNESIUM
     Route: 048
  21. DICLOFENAC SODIUM [Suspect]
     Active Substance: DICLOFENAC SODIUM
     Indication: Product used for unknown indication
  22. DICLOFENAC SODIUM [Suspect]
     Active Substance: DICLOFENAC SODIUM
     Indication: Migraine
  23. DICLOFENAC SODIUM [Suspect]
     Active Substance: DICLOFENAC SODIUM
  24. PROPRANOLOL HYDROCHLORIDE [Suspect]
     Active Substance: PROPRANOLOL HYDROCHLORIDE
     Indication: Migraine
  25. PROPRANOLOL HYDROCHLORIDE [Suspect]
     Active Substance: PROPRANOLOL HYDROCHLORIDE
  26. PROPRANOLOL HYDROCHLORIDE [Suspect]
     Active Substance: PROPRANOLOL HYDROCHLORIDE
  27. PROPRANOLOL HYDROCHLORIDE [Suspect]
     Active Substance: PROPRANOLOL HYDROCHLORIDE
  28. ONDANSETRON [Suspect]
     Active Substance: ONDANSETRON
     Indication: Migraine
  29. ONDANSETRON [Suspect]
     Active Substance: ONDANSETRON
  30. TRAMADOL HYDROCHLORIDE [Suspect]
     Active Substance: TRAMADOL HYDROCHLORIDE
     Indication: Migraine
  31. MORPHINE [Suspect]
     Active Substance: MORPHINE
     Indication: Migraine
  32. VOLTAREN [Suspect]
     Active Substance: DICLOFENAC SODIUM
     Indication: Product used for unknown indication
  33. DIHYDROERGOTAMINE MESYLATE [Suspect]
     Active Substance: DIHYDROERGOTAMINE MESYLATE
     Indication: Migraine
  34. DIHYDROERGOTAMINE MESYLATE [Suspect]
     Active Substance: DIHYDROERGOTAMINE MESYLATE
  35. ACETAMINOPHEN\TRAMADOL [Suspect]
     Active Substance: ACETAMINOPHEN\TRAMADOL
     Indication: Migraine
  36. ACETAMINOPHEN\TRAMADOL [Suspect]
     Active Substance: ACETAMINOPHEN\TRAMADOL
  37. HYDROMORPHONE [Suspect]
     Active Substance: HYDROMORPHONE
     Indication: Migraine
  38. HYDROMORPHONE [Suspect]
     Active Substance: HYDROMORPHONE
  39. DEMEROL [Suspect]
     Active Substance: MEPERIDINE HYDROCHLORIDE
     Indication: Product used for unknown indication
  40. DEMEROL [Suspect]
     Active Substance: MEPERIDINE HYDROCHLORIDE
  41. DEMEROL [Suspect]
     Active Substance: MEPERIDINE HYDROCHLORIDE
  42. DEMEROL [Suspect]
     Active Substance: MEPERIDINE HYDROCHLORIDE
  43. DEMEROL [Suspect]
     Active Substance: MEPERIDINE HYDROCHLORIDE
  44. DEMEROL [Suspect]
     Active Substance: MEPERIDINE HYDROCHLORIDE
  45. DEMEROL [Suspect]
     Active Substance: MEPERIDINE HYDROCHLORIDE
  46. DEMEROL [Suspect]
     Active Substance: MEPERIDINE HYDROCHLORIDE
  47. DEMEROL [Suspect]
     Active Substance: MEPERIDINE HYDROCHLORIDE
  48. DEMEROL [Suspect]
     Active Substance: MEPERIDINE HYDROCHLORIDE
  49. DEMEROL [Suspect]
     Active Substance: MEPERIDINE HYDROCHLORIDE
  50. DEMEROL [Suspect]
     Active Substance: MEPERIDINE HYDROCHLORIDE
  51. DEMEROL [Suspect]
     Active Substance: MEPERIDINE HYDROCHLORIDE
  52. DEMEROL [Suspect]
     Active Substance: MEPERIDINE HYDROCHLORIDE
  53. DEMEROL [Suspect]
     Active Substance: MEPERIDINE HYDROCHLORIDE
  54. DEMEROL [Suspect]
     Active Substance: MEPERIDINE HYDROCHLORIDE
  55. DEMEROL [Suspect]
     Active Substance: MEPERIDINE HYDROCHLORIDE
  56. DEMEROL [Suspect]
     Active Substance: MEPERIDINE HYDROCHLORIDE
  57. DEMEROL [Suspect]
     Active Substance: MEPERIDINE HYDROCHLORIDE
  58. DEMEROL [Suspect]
     Active Substance: MEPERIDINE HYDROCHLORIDE
  59. DEMEROL [Suspect]
     Active Substance: MEPERIDINE HYDROCHLORIDE
  60. DEMEROL [Suspect]
     Active Substance: MEPERIDINE HYDROCHLORIDE
  61. DEMEROL [Suspect]
     Active Substance: MEPERIDINE HYDROCHLORIDE
  62. DEMEROL [Suspect]
     Active Substance: MEPERIDINE HYDROCHLORIDE
  63. DEMEROL [Suspect]
     Active Substance: MEPERIDINE HYDROCHLORIDE
  64. DEMEROL [Suspect]
     Active Substance: MEPERIDINE HYDROCHLORIDE
  65. DEMEROL [Suspect]
     Active Substance: MEPERIDINE HYDROCHLORIDE
  66. DEMEROL [Suspect]
     Active Substance: MEPERIDINE HYDROCHLORIDE
  67. DEMEROL [Suspect]
     Active Substance: MEPERIDINE HYDROCHLORIDE
  68. DEMEROL [Suspect]
     Active Substance: MEPERIDINE HYDROCHLORIDE
  69. DEMEROL [Suspect]
     Active Substance: MEPERIDINE HYDROCHLORIDE
  70. KETAMINE [Suspect]
     Active Substance: KETAMINE
     Indication: Migraine
  71. VENLAFAXINE HYDROCHLORIDE [Suspect]
     Active Substance: VENLAFAXINE HYDROCHLORIDE
     Indication: Migraine
  72. VENLAFAXINE HYDROCHLORIDE [Suspect]
     Active Substance: VENLAFAXINE HYDROCHLORIDE
  73. VENLAFAXINE HYDROCHLORIDE [Suspect]
     Active Substance: VENLAFAXINE HYDROCHLORIDE
  74. AXERT [Suspect]
     Active Substance: ALMOTRIPTAN MALATE
     Indication: Product used for unknown indication
  75. AXERT [Suspect]
     Active Substance: ALMOTRIPTAN MALATE
  76. AXERT [Suspect]
     Active Substance: ALMOTRIPTAN MALATE
  77. AXERT [Suspect]
     Active Substance: ALMOTRIPTAN MALATE
  78. AXERT [Suspect]
     Active Substance: ALMOTRIPTAN MALATE
  79. AXERT [Suspect]
     Active Substance: ALMOTRIPTAN MALATE
  80. AXERT [Suspect]
     Active Substance: ALMOTRIPTAN MALATE
  81. AXERT [Suspect]
     Active Substance: ALMOTRIPTAN MALATE
  82. AXERT [Suspect]
     Active Substance: ALMOTRIPTAN MALATE
  83. AXERT [Suspect]
     Active Substance: ALMOTRIPTAN MALATE
  84. AXERT [Suspect]
     Active Substance: ALMOTRIPTAN MALATE
  85. AXERT [Suspect]
     Active Substance: ALMOTRIPTAN MALATE
  86. AXERT [Suspect]
     Active Substance: ALMOTRIPTAN MALATE
  87. AXERT [Suspect]
     Active Substance: ALMOTRIPTAN MALATE
  88. AXERT [Suspect]
     Active Substance: ALMOTRIPTAN MALATE
  89. AXERT [Suspect]
     Active Substance: ALMOTRIPTAN MALATE
  90. AXERT [Suspect]
     Active Substance: ALMOTRIPTAN MALATE
  91. AXERT [Suspect]
     Active Substance: ALMOTRIPTAN MALATE
  92. AXERT [Suspect]
     Active Substance: ALMOTRIPTAN MALATE
  93. AXERT [Suspect]
     Active Substance: ALMOTRIPTAN MALATE
  94. AXERT [Suspect]
     Active Substance: ALMOTRIPTAN MALATE
  95. AXERT [Suspect]
     Active Substance: ALMOTRIPTAN MALATE
  96. AXERT [Suspect]
     Active Substance: ALMOTRIPTAN MALATE
  97. AXERT [Suspect]
     Active Substance: ALMOTRIPTAN MALATE
  98. AXERT [Suspect]
     Active Substance: ALMOTRIPTAN MALATE
  99. AXERT [Suspect]
     Active Substance: ALMOTRIPTAN MALATE
  100. AXERT [Suspect]
     Active Substance: ALMOTRIPTAN MALATE
  101. AXERT [Suspect]
     Active Substance: ALMOTRIPTAN MALATE
  102. AXERT [Suspect]
     Active Substance: ALMOTRIPTAN MALATE
  103. AXERT [Suspect]
     Active Substance: ALMOTRIPTAN MALATE
  104. AXERT [Suspect]
     Active Substance: ALMOTRIPTAN MALATE
  105. AXERT [Suspect]
     Active Substance: ALMOTRIPTAN MALATE
  106. AXERT [Suspect]
     Active Substance: ALMOTRIPTAN MALATE
  107. AXERT [Suspect]
     Active Substance: ALMOTRIPTAN MALATE
  108. AXERT [Suspect]
     Active Substance: ALMOTRIPTAN MALATE
  109. AXERT [Suspect]
     Active Substance: ALMOTRIPTAN MALATE
  110. AXERT [Suspect]
     Active Substance: ALMOTRIPTAN MALATE
  111. AXERT [Suspect]
     Active Substance: ALMOTRIPTAN MALATE
  112. AXERT [Suspect]
     Active Substance: ALMOTRIPTAN MALATE
  113. AXERT [Suspect]
     Active Substance: ALMOTRIPTAN MALATE
  114. AXERT [Suspect]
     Active Substance: ALMOTRIPTAN MALATE
  115. AXERT [Suspect]
     Active Substance: ALMOTRIPTAN MALATE
  116. AXERT [Suspect]
     Active Substance: ALMOTRIPTAN MALATE
  117. AXERT [Suspect]
     Active Substance: ALMOTRIPTAN MALATE
  118. AXERT [Suspect]
     Active Substance: ALMOTRIPTAN MALATE
  119. AXERT [Suspect]
     Active Substance: ALMOTRIPTAN MALATE
  120. AXERT [Suspect]
     Active Substance: ALMOTRIPTAN MALATE
  121. AXERT [Suspect]
     Active Substance: ALMOTRIPTAN MALATE
  122. AXERT [Suspect]
     Active Substance: ALMOTRIPTAN MALATE
  123. NORTRIPTYLINE [Suspect]
     Active Substance: NORTRIPTYLINE
     Indication: Product used for unknown indication
  124. BOTOX [Suspect]
     Active Substance: ONABOTULINUMTOXINA
     Indication: Product used for unknown indication
  125. BOTOX [Suspect]
     Active Substance: ONABOTULINUMTOXINA
  126. BOTOX [Suspect]
     Active Substance: ONABOTULINUMTOXINA
  127. BOTOX [Suspect]
     Active Substance: ONABOTULINUMTOXINA
  128. BOTOX [Suspect]
     Active Substance: ONABOTULINUMTOXINA
  129. BOTOX [Suspect]
     Active Substance: ONABOTULINUMTOXINA
  130. BOTOX [Suspect]
     Active Substance: ONABOTULINUMTOXINA
  131. BOTOX [Suspect]
     Active Substance: ONABOTULINUMTOXINA
  132. BOTOX [Suspect]
     Active Substance: ONABOTULINUMTOXINA
  133. BOTOX [Suspect]
     Active Substance: ONABOTULINUMTOXINA
  134. BOTOX [Suspect]
     Active Substance: ONABOTULINUMTOXINA
  135. BOTOX [Suspect]
     Active Substance: ONABOTULINUMTOXINA
  136. BOTOX [Suspect]
     Active Substance: ONABOTULINUMTOXINA
  137. BOTOX [Suspect]
     Active Substance: ONABOTULINUMTOXINA
  138. BOTOX [Suspect]
     Active Substance: ONABOTULINUMTOXINA
  139. BOTOX [Suspect]
     Active Substance: ONABOTULINUMTOXINA
  140. BOTOX [Suspect]
     Active Substance: ONABOTULINUMTOXINA
  141. BOTOX [Suspect]
     Active Substance: ONABOTULINUMTOXINA
  142. BOTOX [Suspect]
     Active Substance: ONABOTULINUMTOXINA
  143. BOTOX [Suspect]
     Active Substance: ONABOTULINUMTOXINA
  144. BOTOX [Suspect]
     Active Substance: ONABOTULINUMTOXINA
  145. BOTOX [Suspect]
     Active Substance: ONABOTULINUMTOXINA
  146. BOTOX [Suspect]
     Active Substance: ONABOTULINUMTOXINA
  147. BOTOX [Suspect]
     Active Substance: ONABOTULINUMTOXINA
  148. BOTOX [Suspect]
     Active Substance: ONABOTULINUMTOXINA
  149. BOTOX [Suspect]
     Active Substance: ONABOTULINUMTOXINA
  150. BOTOX [Suspect]
     Active Substance: ONABOTULINUMTOXINA
  151. BOTOX [Suspect]
     Active Substance: ONABOTULINUMTOXINA
  152. BOTOX [Suspect]
     Active Substance: ONABOTULINUMTOXINA
  153. BOTOX [Suspect]
     Active Substance: ONABOTULINUMTOXINA
  154. BOTOX [Suspect]
     Active Substance: ONABOTULINUMTOXINA
  155. BOTOX [Suspect]
     Active Substance: ONABOTULINUMTOXINA
  156. BOTOX [Suspect]
     Active Substance: ONABOTULINUMTOXINA
  157. BOTOX [Suspect]
     Active Substance: ONABOTULINUMTOXINA
  158. BOTOX [Suspect]
     Active Substance: ONABOTULINUMTOXINA
  159. BOTOX [Suspect]
     Active Substance: ONABOTULINUMTOXINA
  160. BOTOX [Suspect]
     Active Substance: ONABOTULINUMTOXINA
  161. BOTOX [Suspect]
     Active Substance: ONABOTULINUMTOXINA
  162. BOTOX [Suspect]
     Active Substance: ONABOTULINUMTOXINA
  163. BOTOX [Suspect]
     Active Substance: ONABOTULINUMTOXINA
  164. BOTOX [Suspect]
     Active Substance: ONABOTULINUMTOXINA
  165. BOTOX [Suspect]
     Active Substance: ONABOTULINUMTOXINA
  166. BOTOX [Suspect]
     Active Substance: ONABOTULINUMTOXINA
  167. BOTOX [Suspect]
     Active Substance: ONABOTULINUMTOXINA
  168. BOTOX [Suspect]
     Active Substance: ONABOTULINUMTOXINA
  169. BOTOX [Suspect]
     Active Substance: ONABOTULINUMTOXINA
  170. BOTOX [Suspect]
     Active Substance: ONABOTULINUMTOXINA
  171. BOTOX [Suspect]
     Active Substance: ONABOTULINUMTOXINA
  172. BOTOX [Suspect]
     Active Substance: ONABOTULINUMTOXINA
  173. BOTOX [Suspect]
     Active Substance: ONABOTULINUMTOXINA
  174. BOTOX [Suspect]
     Active Substance: ONABOTULINUMTOXINA
     Route: 030
  175. BOTOX [Suspect]
     Active Substance: ONABOTULINUMTOXINA
  176. GABAPENTIN [Suspect]
     Active Substance: GABAPENTIN
     Indication: Product used for unknown indication
  177. PROPRANOLOL [Suspect]
     Active Substance: PROPRANOLOL HYDROCHLORIDE
     Indication: Product used for unknown indication
  178. PROPRANOLOL [Suspect]
     Active Substance: PROPRANOLOL HYDROCHLORIDE
  179. PROPRANOLOL [Suspect]
     Active Substance: PROPRANOLOL HYDROCHLORIDE
  180. PROPRANOLOL [Suspect]
     Active Substance: PROPRANOLOL HYDROCHLORIDE
  181. PROPRANOLOL [Suspect]
     Active Substance: PROPRANOLOL HYDROCHLORIDE
  182. PROPRANOLOL [Suspect]
     Active Substance: PROPRANOLOL HYDROCHLORIDE
  183. PROPRANOLOL [Suspect]
     Active Substance: PROPRANOLOL HYDROCHLORIDE
  184. PROPRANOLOL [Suspect]
     Active Substance: PROPRANOLOL HYDROCHLORIDE
  185. PROPRANOLOL [Suspect]
     Active Substance: PROPRANOLOL HYDROCHLORIDE
  186. PROPRANOLOL [Suspect]
     Active Substance: PROPRANOLOL HYDROCHLORIDE
  187. PROPRANOLOL [Suspect]
     Active Substance: PROPRANOLOL HYDROCHLORIDE
  188. PROPRANOLOL [Suspect]
     Active Substance: PROPRANOLOL HYDROCHLORIDE
  189. PROPRANOLOL [Suspect]
     Active Substance: PROPRANOLOL HYDROCHLORIDE
  190. PROPRANOLOL [Suspect]
     Active Substance: PROPRANOLOL HYDROCHLORIDE
  191. PROPRANOLOL [Suspect]
     Active Substance: PROPRANOLOL HYDROCHLORIDE
  192. PROPRANOLOL [Suspect]
     Active Substance: PROPRANOLOL HYDROCHLORIDE
  193. PROPRANOLOL [Suspect]
     Active Substance: PROPRANOLOL HYDROCHLORIDE
  194. PROPRANOLOL [Suspect]
     Active Substance: PROPRANOLOL HYDROCHLORIDE
  195. PROPRANOLOL [Suspect]
     Active Substance: PROPRANOLOL HYDROCHLORIDE
  196. PROPRANOLOL [Suspect]
     Active Substance: PROPRANOLOL HYDROCHLORIDE
  197. PROPRANOLOL [Suspect]
     Active Substance: PROPRANOLOL HYDROCHLORIDE
  198. PROPRANOLOL [Suspect]
     Active Substance: PROPRANOLOL HYDROCHLORIDE
  199. PROPRANOLOL [Suspect]
     Active Substance: PROPRANOLOL HYDROCHLORIDE
  200. PROPRANOLOL [Suspect]
     Active Substance: PROPRANOLOL HYDROCHLORIDE
  201. PROPRANOLOL [Suspect]
     Active Substance: PROPRANOLOL HYDROCHLORIDE
  202. PROPRANOLOL [Suspect]
     Active Substance: PROPRANOLOL HYDROCHLORIDE
  203. PROPRANOLOL [Suspect]
     Active Substance: PROPRANOLOL HYDROCHLORIDE
  204. PROPRANOLOL [Suspect]
     Active Substance: PROPRANOLOL HYDROCHLORIDE
  205. PROPRANOLOL [Suspect]
     Active Substance: PROPRANOLOL HYDROCHLORIDE
  206. PROPRANOLOL [Suspect]
     Active Substance: PROPRANOLOL HYDROCHLORIDE
  207. PROPRANOLOL [Suspect]
     Active Substance: PROPRANOLOL HYDROCHLORIDE
  208. PROPRANOLOL [Suspect]
     Active Substance: PROPRANOLOL HYDROCHLORIDE
  209. PROPRANOLOL [Suspect]
     Active Substance: PROPRANOLOL HYDROCHLORIDE
  210. PROPRANOLOL [Suspect]
     Active Substance: PROPRANOLOL HYDROCHLORIDE
  211. PROPRANOLOL [Suspect]
     Active Substance: PROPRANOLOL HYDROCHLORIDE
  212. PROPRANOLOL [Suspect]
     Active Substance: PROPRANOLOL HYDROCHLORIDE
  213. PROPRANOLOL [Suspect]
     Active Substance: PROPRANOLOL HYDROCHLORIDE
  214. PROPRANOLOL [Suspect]
     Active Substance: PROPRANOLOL HYDROCHLORIDE
  215. PROPRANOLOL [Suspect]
     Active Substance: PROPRANOLOL HYDROCHLORIDE
  216. PROPRANOLOL [Suspect]
     Active Substance: PROPRANOLOL HYDROCHLORIDE
  217. PROPRANOLOL [Suspect]
     Active Substance: PROPRANOLOL HYDROCHLORIDE
  218. TORADOL [Suspect]
     Active Substance: KETOROLAC TROMETHAMINE
     Indication: Migraine
  219. TORADOL [Suspect]
     Active Substance: KETOROLAC TROMETHAMINE
  220. TORADOL [Suspect]
     Active Substance: KETOROLAC TROMETHAMINE
  221. TOPAMAX [Suspect]
     Active Substance: TOPIRAMATE
     Indication: Product used for unknown indication
  222. TOPAMAX [Suspect]
     Active Substance: TOPIRAMATE
  223. DIPHENHYDRAMINE HYDROCHLORIDE\IBUPROFEN [Suspect]
     Active Substance: DIPHENHYDRAMINE HYDROCHLORIDE\IBUPROFEN
     Indication: Product used for unknown indication
  224. TYLENOL [Suspect]
     Active Substance: ACETAMINOPHEN
     Indication: Product used for unknown indication
  225. TYLENOL [Suspect]
     Active Substance: ACETAMINOPHEN
  226. TYLENOL [Suspect]
     Active Substance: ACETAMINOPHEN
  227. TYLENOL [Suspect]
     Active Substance: ACETAMINOPHEN
  228. ENDOCET [Suspect]
     Active Substance: ACETAMINOPHEN\OXYCODONE HYDROCHLORIDE
     Indication: Migraine
     Route: 048
  229. TENORETIC [Suspect]
     Active Substance: ATENOLOL\CHLORTHALIDONE
     Indication: Product used for unknown indication
     Route: 048
  230. TENORETIC [Suspect]
     Active Substance: ATENOLOL\CHLORTHALIDONE
     Route: 048
  231. TENORETIC [Suspect]
     Active Substance: ATENOLOL\CHLORTHALIDONE
     Route: 048
  232. TENORETIC [Suspect]
     Active Substance: ATENOLOL\CHLORTHALIDONE
     Route: 048
  233. TENORETIC [Suspect]
     Active Substance: ATENOLOL\CHLORTHALIDONE
     Route: 048
  234. TENORETIC [Suspect]
     Active Substance: ATENOLOL\CHLORTHALIDONE
     Route: 048
  235. TENORETIC [Suspect]
     Active Substance: ATENOLOL\CHLORTHALIDONE
     Route: 048
  236. TENORETIC [Suspect]
     Active Substance: ATENOLOL\CHLORTHALIDONE
     Route: 048
  237. TENORETIC [Suspect]
     Active Substance: ATENOLOL\CHLORTHALIDONE
     Route: 048
  238. TENORETIC [Suspect]
     Active Substance: ATENOLOL\CHLORTHALIDONE
     Route: 048
  239. TENORETIC [Suspect]
     Active Substance: ATENOLOL\CHLORTHALIDONE
     Route: 048
  240. TENORETIC [Suspect]
     Active Substance: ATENOLOL\CHLORTHALIDONE
     Route: 048
  241. TENORETIC [Suspect]
     Active Substance: ATENOLOL\CHLORTHALIDONE
     Route: 048
  242. TENORETIC [Suspect]
     Active Substance: ATENOLOL\CHLORTHALIDONE
     Route: 048
  243. TENORETIC [Suspect]
     Active Substance: ATENOLOL\CHLORTHALIDONE
     Route: 048
  244. TENORETIC [Suspect]
     Active Substance: ATENOLOL\CHLORTHALIDONE
     Route: 048
  245. TENORETIC [Suspect]
     Active Substance: ATENOLOL\CHLORTHALIDONE
     Route: 048
  246. TENORETIC [Suspect]
     Active Substance: ATENOLOL\CHLORTHALIDONE
     Route: 048
  247. TENORETIC [Suspect]
     Active Substance: ATENOLOL\CHLORTHALIDONE
     Route: 048
  248. TENORETIC [Suspect]
     Active Substance: ATENOLOL\CHLORTHALIDONE
     Route: 048
  249. TENORETIC [Suspect]
     Active Substance: ATENOLOL\CHLORTHALIDONE
     Route: 048
  250. TENORETIC [Suspect]
     Active Substance: ATENOLOL\CHLORTHALIDONE
     Route: 048
  251. TENORETIC [Suspect]
     Active Substance: ATENOLOL\CHLORTHALIDONE
     Route: 048
  252. TENORETIC [Suspect]
     Active Substance: ATENOLOL\CHLORTHALIDONE
     Route: 048
  253. TENORETIC [Suspect]
     Active Substance: ATENOLOL\CHLORTHALIDONE
     Route: 048
  254. TENORETIC [Suspect]
     Active Substance: ATENOLOL\CHLORTHALIDONE
     Route: 048
  255. TENORETIC [Suspect]
     Active Substance: ATENOLOL\CHLORTHALIDONE
     Route: 048
  256. TENORETIC [Suspect]
     Active Substance: ATENOLOL\CHLORTHALIDONE
     Route: 048
  257. TENORETIC [Suspect]
     Active Substance: ATENOLOL\CHLORTHALIDONE
     Route: 048
  258. TENORETIC [Suspect]
     Active Substance: ATENOLOL\CHLORTHALIDONE
     Route: 048
  259. TENORETIC [Suspect]
     Active Substance: ATENOLOL\CHLORTHALIDONE
     Route: 048
  260. TENORETIC [Suspect]
     Active Substance: ATENOLOL\CHLORTHALIDONE
     Route: 048
  261. TENORETIC [Suspect]
     Active Substance: ATENOLOL\CHLORTHALIDONE
     Route: 048
  262. TENORETIC [Suspect]
     Active Substance: ATENOLOL\CHLORTHALIDONE
     Route: 048
  263. TENORETIC [Suspect]
     Active Substance: ATENOLOL\CHLORTHALIDONE
     Route: 048
  264. TENORETIC [Suspect]
     Active Substance: ATENOLOL\CHLORTHALIDONE
     Route: 048
  265. TENORETIC [Suspect]
     Active Substance: ATENOLOL\CHLORTHALIDONE
     Route: 048
  266. TENORETIC [Suspect]
     Active Substance: ATENOLOL\CHLORTHALIDONE
     Route: 048
  267. TENORETIC [Suspect]
     Active Substance: ATENOLOL\CHLORTHALIDONE
     Route: 048
  268. TENORETIC [Suspect]
     Active Substance: ATENOLOL\CHLORTHALIDONE
     Route: 048
  269. TENORETIC [Suspect]
     Active Substance: ATENOLOL\CHLORTHALIDONE
     Route: 048
  270. TENORETIC [Suspect]
     Active Substance: ATENOLOL\CHLORTHALIDONE
     Route: 048
  271. TENORETIC [Suspect]
     Active Substance: ATENOLOL\CHLORTHALIDONE
     Route: 048
  272. TENORETIC [Suspect]
     Active Substance: ATENOLOL\CHLORTHALIDONE
     Route: 048
  273. TENORETIC [Suspect]
     Active Substance: ATENOLOL\CHLORTHALIDONE
     Route: 048
  274. TENORETIC [Suspect]
     Active Substance: ATENOLOL\CHLORTHALIDONE
     Route: 048
  275. TENORETIC [Suspect]
     Active Substance: ATENOLOL\CHLORTHALIDONE
     Route: 048
  276. CELEBREX [Suspect]
     Active Substance: CELECOXIB
     Indication: Product used for unknown indication
  277. CELEBREX [Suspect]
     Active Substance: CELECOXIB
  278. AMITRIPTYLINE [Suspect]
     Active Substance: AMITRIPTYLINE
     Indication: Product used for unknown indication
  279. AMITRIPTYLINE [Suspect]
     Active Substance: AMITRIPTYLINE
  280. AMITRIPTYLINE [Suspect]
     Active Substance: AMITRIPTYLINE
  281. AMITRIPTYLINE [Suspect]
     Active Substance: AMITRIPTYLINE
  282. AMITRIPTYLINE [Suspect]
     Active Substance: AMITRIPTYLINE
  283. AMITRIPTYLINE [Suspect]
     Active Substance: AMITRIPTYLINE
  284. AMITRIPTYLINE [Suspect]
     Active Substance: AMITRIPTYLINE
  285. AMITRIPTYLINE [Suspect]
     Active Substance: AMITRIPTYLINE
  286. AMITRIPTYLINE [Suspect]
     Active Substance: AMITRIPTYLINE
  287. AMITRIPTYLINE [Suspect]
     Active Substance: AMITRIPTYLINE
  288. AMITRIPTYLINE [Suspect]
     Active Substance: AMITRIPTYLINE
  289. AMITRIPTYLINE [Suspect]
     Active Substance: AMITRIPTYLINE
  290. AMITRIPTYLINE [Suspect]
     Active Substance: AMITRIPTYLINE
  291. AMITRIPTYLINE [Suspect]
     Active Substance: AMITRIPTYLINE
  292. AMITRIPTYLINE [Suspect]
     Active Substance: AMITRIPTYLINE
  293. AMITRIPTYLINE [Suspect]
     Active Substance: AMITRIPTYLINE
  294. AMITRIPTYLINE [Suspect]
     Active Substance: AMITRIPTYLINE
  295. AMITRIPTYLINE [Suspect]
     Active Substance: AMITRIPTYLINE
  296. MAXALT [Suspect]
     Active Substance: RIZATRIPTAN BENZOATE
     Indication: Product used for unknown indication
  297. MAXALT [Suspect]
     Active Substance: RIZATRIPTAN BENZOATE
  298. DULOXETINE [Suspect]
     Active Substance: DULOXETINE
     Indication: Product used for unknown indication
  299. DULOXETINE [Suspect]
     Active Substance: DULOXETINE
  300. VIMOVO [Suspect]
     Active Substance: ESOMEPRAZOLE MAGNESIUM\NAPROXEN
     Indication: Product used for unknown indication
     Route: 048
  301. VIMOVO [Suspect]
     Active Substance: ESOMEPRAZOLE MAGNESIUM\NAPROXEN
     Route: 048
  302. VIMOVO [Suspect]
     Active Substance: ESOMEPRAZOLE MAGNESIUM\NAPROXEN
     Route: 048
  303. VIMOVO [Suspect]
     Active Substance: ESOMEPRAZOLE MAGNESIUM\NAPROXEN
     Route: 048
  304. VIMOVO [Suspect]
     Active Substance: ESOMEPRAZOLE MAGNESIUM\NAPROXEN
     Route: 048
  305. VIMOVO [Suspect]
     Active Substance: ESOMEPRAZOLE MAGNESIUM\NAPROXEN
     Route: 048
  306. VIMOVO [Suspect]
     Active Substance: ESOMEPRAZOLE MAGNESIUM\NAPROXEN
     Route: 048
  307. VIMOVO [Suspect]
     Active Substance: ESOMEPRAZOLE MAGNESIUM\NAPROXEN
     Route: 048
  308. VIMOVO [Suspect]
     Active Substance: ESOMEPRAZOLE MAGNESIUM\NAPROXEN
     Route: 048
  309. VIMOVO [Suspect]
     Active Substance: ESOMEPRAZOLE MAGNESIUM\NAPROXEN
     Route: 048
  310. VIMOVO [Suspect]
     Active Substance: ESOMEPRAZOLE MAGNESIUM\NAPROXEN
     Route: 048
  311. VIMOVO [Suspect]
     Active Substance: ESOMEPRAZOLE MAGNESIUM\NAPROXEN
     Route: 048
  312. VIMOVO [Suspect]
     Active Substance: ESOMEPRAZOLE MAGNESIUM\NAPROXEN
     Route: 048
  313. VIMOVO [Suspect]
     Active Substance: ESOMEPRAZOLE MAGNESIUM\NAPROXEN
     Route: 048
  314. VIMOVO [Suspect]
     Active Substance: ESOMEPRAZOLE MAGNESIUM\NAPROXEN
     Route: 048
  315. VIMOVO [Suspect]
     Active Substance: ESOMEPRAZOLE MAGNESIUM\NAPROXEN
     Route: 048
  316. VIMOVO [Suspect]
     Active Substance: ESOMEPRAZOLE MAGNESIUM\NAPROXEN
     Route: 048
  317. VIMOVO [Suspect]
     Active Substance: ESOMEPRAZOLE MAGNESIUM\NAPROXEN
     Route: 048
  318. VIMOVO [Suspect]
     Active Substance: ESOMEPRAZOLE MAGNESIUM\NAPROXEN
     Route: 048
  319. VIMOVO [Suspect]
     Active Substance: ESOMEPRAZOLE MAGNESIUM\NAPROXEN
     Route: 048
  320. VIMOVO [Suspect]
     Active Substance: ESOMEPRAZOLE MAGNESIUM\NAPROXEN
     Route: 048
  321. VIMOVO [Suspect]
     Active Substance: ESOMEPRAZOLE MAGNESIUM\NAPROXEN
     Route: 048
  322. VIMOVO [Suspect]
     Active Substance: ESOMEPRAZOLE MAGNESIUM\NAPROXEN
     Route: 048
  323. VIMOVO [Suspect]
     Active Substance: ESOMEPRAZOLE MAGNESIUM\NAPROXEN
     Route: 048
  324. VIMOVO [Suspect]
     Active Substance: ESOMEPRAZOLE MAGNESIUM\NAPROXEN
     Route: 048
  325. VIMOVO [Suspect]
     Active Substance: ESOMEPRAZOLE MAGNESIUM\NAPROXEN
     Route: 048
  326. VIMOVO [Suspect]
     Active Substance: ESOMEPRAZOLE MAGNESIUM\NAPROXEN
     Route: 048
  327. VIMOVO [Suspect]
     Active Substance: ESOMEPRAZOLE MAGNESIUM\NAPROXEN
     Route: 048
  328. VIMOVO [Suspect]
     Active Substance: ESOMEPRAZOLE MAGNESIUM\NAPROXEN
     Route: 048
  329. VIMOVO [Suspect]
     Active Substance: ESOMEPRAZOLE MAGNESIUM\NAPROXEN
     Route: 048
  330. VIMOVO [Suspect]
     Active Substance: ESOMEPRAZOLE MAGNESIUM\NAPROXEN
     Route: 048
  331. VIMOVO [Suspect]
     Active Substance: ESOMEPRAZOLE MAGNESIUM\NAPROXEN
     Route: 048
  332. VIMOVO [Suspect]
     Active Substance: ESOMEPRAZOLE MAGNESIUM\NAPROXEN
     Route: 048
  333. VIMOVO [Suspect]
     Active Substance: ESOMEPRAZOLE MAGNESIUM\NAPROXEN
     Route: 048
  334. VIMOVO [Suspect]
     Active Substance: ESOMEPRAZOLE MAGNESIUM\NAPROXEN
  335. VIMOVO [Suspect]
     Active Substance: ESOMEPRAZOLE MAGNESIUM\NAPROXEN
     Route: 048
  336. VIMOVO [Suspect]
     Active Substance: ESOMEPRAZOLE MAGNESIUM\NAPROXEN
     Route: 048
  337. VIMOVO [Suspect]
     Active Substance: ESOMEPRAZOLE MAGNESIUM\NAPROXEN
     Route: 048
  338. VIMOVO [Suspect]
     Active Substance: ESOMEPRAZOLE MAGNESIUM\NAPROXEN
     Route: 048
  339. VIMOVO [Suspect]
     Active Substance: ESOMEPRAZOLE MAGNESIUM\NAPROXEN
     Route: 048
  340. VIMOVO [Suspect]
     Active Substance: ESOMEPRAZOLE MAGNESIUM\NAPROXEN
     Route: 048
  341. VIMOVO [Suspect]
     Active Substance: ESOMEPRAZOLE MAGNESIUM\NAPROXEN
     Route: 048
  342. VIMOVO [Suspect]
     Active Substance: ESOMEPRAZOLE MAGNESIUM\NAPROXEN
     Route: 048
  343. VIMOVO [Suspect]
     Active Substance: ESOMEPRAZOLE MAGNESIUM\NAPROXEN
     Route: 048
  344. VIMOVO [Suspect]
     Active Substance: ESOMEPRAZOLE MAGNESIUM\NAPROXEN
     Route: 048
  345. VIMOVO [Suspect]
     Active Substance: ESOMEPRAZOLE MAGNESIUM\NAPROXEN
     Route: 048
  346. VIMOVO [Suspect]
     Active Substance: ESOMEPRAZOLE MAGNESIUM\NAPROXEN
     Route: 048
  347. VIMOVO [Suspect]
     Active Substance: ESOMEPRAZOLE MAGNESIUM\NAPROXEN
     Route: 048
  348. VIMOVO [Suspect]
     Active Substance: ESOMEPRAZOLE MAGNESIUM\NAPROXEN
     Route: 048
  349. CODEINE PHOSPHATE [Suspect]
     Active Substance: CODEINE PHOSPHATE
     Indication: Migraine
  350. CODEINE PHOSPHATE [Suspect]
     Active Substance: CODEINE PHOSPHATE
  351. CODEINE PHOSPHATE [Suspect]
     Active Substance: CODEINE PHOSPHATE
  352. CODEINE PHOSPHATE [Suspect]
     Active Substance: CODEINE PHOSPHATE
  353. CODEINE PHOSPHATE [Suspect]
     Active Substance: CODEINE PHOSPHATE
  354. CODEINE PHOSPHATE [Suspect]
     Active Substance: CODEINE PHOSPHATE
  355. CODEINE PHOSPHATE [Suspect]
     Active Substance: CODEINE PHOSPHATE
  356. CODEINE PHOSPHATE [Suspect]
     Active Substance: CODEINE PHOSPHATE
  357. CODEINE PHOSPHATE [Suspect]
     Active Substance: CODEINE PHOSPHATE
  358. CODEINE PHOSPHATE [Suspect]
     Active Substance: CODEINE PHOSPHATE
  359. CODEINE PHOSPHATE [Suspect]
     Active Substance: CODEINE PHOSPHATE
  360. CODEINE PHOSPHATE [Suspect]
     Active Substance: CODEINE PHOSPHATE
  361. CODEINE PHOSPHATE [Suspect]
     Active Substance: CODEINE PHOSPHATE
  362. CODEINE PHOSPHATE [Suspect]
     Active Substance: CODEINE PHOSPHATE
  363. CODEINE PHOSPHATE [Suspect]
     Active Substance: CODEINE PHOSPHATE
  364. CODEINE PHOSPHATE [Suspect]
     Active Substance: CODEINE PHOSPHATE
  365. CODEINE PHOSPHATE [Suspect]
     Active Substance: CODEINE PHOSPHATE
  366. CODEINE PHOSPHATE [Suspect]
     Active Substance: CODEINE PHOSPHATE
  367. CODEINE PHOSPHATE [Suspect]
     Active Substance: CODEINE PHOSPHATE
  368. CODEINE PHOSPHATE [Suspect]
     Active Substance: CODEINE PHOSPHATE
  369. CODEINE PHOSPHATE [Suspect]
     Active Substance: CODEINE PHOSPHATE
  370. CODEINE PHOSPHATE [Suspect]
     Active Substance: CODEINE PHOSPHATE
  371. CODEINE PHOSPHATE [Suspect]
     Active Substance: CODEINE PHOSPHATE
  372. CODEINE PHOSPHATE [Suspect]
     Active Substance: CODEINE PHOSPHATE
  373. CODEINE PHOSPHATE [Suspect]
     Active Substance: CODEINE PHOSPHATE
  374. CODEINE PHOSPHATE [Suspect]
     Active Substance: CODEINE PHOSPHATE
  375. CODEINE PHOSPHATE [Suspect]
     Active Substance: CODEINE PHOSPHATE
  376. CODEINE PHOSPHATE [Suspect]
     Active Substance: CODEINE PHOSPHATE
  377. CODEINE PHOSPHATE [Suspect]
     Active Substance: CODEINE PHOSPHATE
  378. CODEINE PHOSPHATE [Suspect]
     Active Substance: CODEINE PHOSPHATE
  379. CODEINE PHOSPHATE [Suspect]
     Active Substance: CODEINE PHOSPHATE
  380. ACETAMINOPHEN\TRAMADOL [Suspect]
     Active Substance: ACETAMINOPHEN\TRAMADOL
     Indication: Migraine
  381. ALMOTRIPTAN MALATE [Suspect]
     Active Substance: ALMOTRIPTAN MALATE
     Indication: Migraine
  382. ALMOTRIPTAN MALATE [Suspect]
     Active Substance: ALMOTRIPTAN MALATE
     Indication: Product used for unknown indication
  383. ALMOTRIPTAN MALATE [Suspect]
     Active Substance: ALMOTRIPTAN MALATE
  384. ALMOTRIPTAN MALATE [Suspect]
     Active Substance: ALMOTRIPTAN MALATE
  385. ALMOTRIPTAN MALATE [Suspect]
     Active Substance: ALMOTRIPTAN MALATE
  386. ALMOTRIPTAN MALATE [Suspect]
     Active Substance: ALMOTRIPTAN MALATE
  387. ALMOTRIPTAN MALATE [Suspect]
     Active Substance: ALMOTRIPTAN MALATE
  388. ALMOTRIPTAN MALATE [Suspect]
     Active Substance: ALMOTRIPTAN MALATE
  389. ALMOTRIPTAN MALATE [Suspect]
     Active Substance: ALMOTRIPTAN MALATE
  390. ALMOTRIPTAN MALATE [Suspect]
     Active Substance: ALMOTRIPTAN MALATE
  391. ALMOTRIPTAN MALATE [Suspect]
     Active Substance: ALMOTRIPTAN MALATE
  392. ALMOTRIPTAN MALATE [Suspect]
     Active Substance: ALMOTRIPTAN MALATE
  393. ALMOTRIPTAN MALATE [Suspect]
     Active Substance: ALMOTRIPTAN MALATE
  394. ALMOTRIPTAN MALATE [Suspect]
     Active Substance: ALMOTRIPTAN MALATE
  395. ALMOTRIPTAN MALATE [Suspect]
     Active Substance: ALMOTRIPTAN MALATE
  396. ALMOTRIPTAN MALATE [Suspect]
     Active Substance: ALMOTRIPTAN MALATE
  397. ALMOTRIPTAN MALATE [Suspect]
     Active Substance: ALMOTRIPTAN MALATE
  398. ALMOTRIPTAN MALATE [Suspect]
     Active Substance: ALMOTRIPTAN MALATE
  399. ALMOTRIPTAN MALATE [Suspect]
     Active Substance: ALMOTRIPTAN MALATE
  400. ALMOTRIPTAN MALATE [Suspect]
     Active Substance: ALMOTRIPTAN MALATE
  401. ALMOTRIPTAN MALATE [Suspect]
     Active Substance: ALMOTRIPTAN MALATE
  402. ALMOTRIPTAN MALATE [Suspect]
     Active Substance: ALMOTRIPTAN MALATE
  403. ALMOTRIPTAN MALATE [Suspect]
     Active Substance: ALMOTRIPTAN MALATE
  404. ALMOTRIPTAN MALATE [Suspect]
     Active Substance: ALMOTRIPTAN MALATE
  405. ALMOTRIPTAN MALATE [Suspect]
     Active Substance: ALMOTRIPTAN MALATE
  406. ALMOTRIPTAN MALATE [Suspect]
     Active Substance: ALMOTRIPTAN MALATE
  407. ALMOTRIPTAN MALATE [Suspect]
     Active Substance: ALMOTRIPTAN MALATE
  408. ALMOTRIPTAN MALATE [Suspect]
     Active Substance: ALMOTRIPTAN MALATE
  409. ALMOTRIPTAN MALATE [Suspect]
     Active Substance: ALMOTRIPTAN MALATE
  410. ALMOTRIPTAN MALATE [Suspect]
     Active Substance: ALMOTRIPTAN MALATE
  411. ALMOTRIPTAN MALATE [Suspect]
     Active Substance: ALMOTRIPTAN MALATE
  412. ALMOTRIPTAN MALATE [Suspect]
     Active Substance: ALMOTRIPTAN MALATE
  413. ALMOTRIPTAN MALATE [Suspect]
     Active Substance: ALMOTRIPTAN MALATE
  414. ALMOTRIPTAN MALATE [Suspect]
     Active Substance: ALMOTRIPTAN MALATE
  415. ALMOTRIPTAN MALATE [Suspect]
     Active Substance: ALMOTRIPTAN MALATE
  416. ALMOTRIPTAN MALATE [Suspect]
     Active Substance: ALMOTRIPTAN MALATE
  417. ALMOTRIPTAN MALATE [Suspect]
     Active Substance: ALMOTRIPTAN MALATE
  418. ALMOTRIPTAN MALATE [Suspect]
     Active Substance: ALMOTRIPTAN MALATE
  419. ALMOTRIPTAN MALATE [Suspect]
     Active Substance: ALMOTRIPTAN MALATE
  420. ALMOTRIPTAN MALATE [Suspect]
     Active Substance: ALMOTRIPTAN MALATE
  421. ALMOTRIPTAN MALATE [Suspect]
     Active Substance: ALMOTRIPTAN MALATE
  422. ALMOTRIPTAN MALATE [Suspect]
     Active Substance: ALMOTRIPTAN MALATE
  423. ALMOTRIPTAN MALATE [Suspect]
     Active Substance: ALMOTRIPTAN MALATE
  424. ALMOTRIPTAN MALATE [Suspect]
     Active Substance: ALMOTRIPTAN MALATE
  425. ALMOTRIPTAN MALATE [Suspect]
     Active Substance: ALMOTRIPTAN MALATE
  426. ALMOTRIPTAN MALATE [Suspect]
     Active Substance: ALMOTRIPTAN MALATE
  427. ALMOTRIPTAN MALATE [Suspect]
     Active Substance: ALMOTRIPTAN MALATE
  428. ALMOTRIPTAN MALATE [Suspect]
     Active Substance: ALMOTRIPTAN MALATE
  429. ALMOTRIPTAN MALATE [Suspect]
     Active Substance: ALMOTRIPTAN MALATE
  430. ALMOTRIPTAN MALATE [Suspect]
     Active Substance: ALMOTRIPTAN MALATE
  431. MORPHINE SULFATE [Suspect]
     Active Substance: MORPHINE SULFATE
     Indication: Migraine
  432. MORPHINE SULFATE [Suspect]
     Active Substance: MORPHINE SULFATE
  433. MORPHINE SULFATE [Suspect]
     Active Substance: MORPHINE SULFATE
  434. MORPHINE SULFATE [Suspect]
     Active Substance: MORPHINE SULFATE
  435. ONDANSETRON HYDROCHLORIDE [Suspect]
     Active Substance: ONDANSETRON HYDROCHLORIDE
     Indication: Migraine
  436. ONDANSETRON HYDROCHLORIDE [Suspect]
     Active Substance: ONDANSETRON HYDROCHLORIDE
  437. ZOFRAN [Suspect]
     Active Substance: ONDANSETRON HYDROCHLORIDE
     Indication: Migraine
  438. TOPIRAMATE [Suspect]
     Active Substance: TOPIRAMATE
     Indication: Migraine
     Route: 048
  439. TOPIRAMATE [Suspect]
     Active Substance: TOPIRAMATE
     Indication: Product used for unknown indication
  440. TOPIRAMATE [Suspect]
     Active Substance: TOPIRAMATE
  441. CODEINE [Suspect]
     Active Substance: CODEINE
     Indication: Migraine
  442. CODEINE [Suspect]
     Active Substance: CODEINE
  443. CODEINE [Suspect]
     Active Substance: CODEINE
  444. CODEINE [Suspect]
     Active Substance: CODEINE
  445. CODEINE [Suspect]
     Active Substance: CODEINE
  446. CODEINE [Suspect]
     Active Substance: CODEINE
  447. CODEINE [Suspect]
     Active Substance: CODEINE
  448. CODEINE [Suspect]
     Active Substance: CODEINE
  449. CODEINE [Suspect]
     Active Substance: CODEINE
  450. CODEINE [Suspect]
     Active Substance: CODEINE
  451. CODEINE [Suspect]
     Active Substance: CODEINE
  452. CODEINE [Suspect]
     Active Substance: CODEINE
  453. CODEINE [Suspect]
     Active Substance: CODEINE
  454. CODEINE [Suspect]
     Active Substance: CODEINE
  455. CODEINE [Suspect]
     Active Substance: CODEINE
  456. CODEINE [Suspect]
     Active Substance: CODEINE
  457. CODEINE [Suspect]
     Active Substance: CODEINE
  458. CODEINE [Suspect]
     Active Substance: CODEINE
  459. CODEINE [Suspect]
     Active Substance: CODEINE
  460. CODEINE [Suspect]
     Active Substance: CODEINE
  461. CODEINE [Suspect]
     Active Substance: CODEINE
  462. CODEINE [Suspect]
     Active Substance: CODEINE
  463. CODEINE [Suspect]
     Active Substance: CODEINE
  464. CODEINE [Suspect]
     Active Substance: CODEINE
  465. CODEINE [Suspect]
     Active Substance: CODEINE
  466. CODEINE [Suspect]
     Active Substance: CODEINE
  467. CODEINE [Suspect]
     Active Substance: CODEINE
  468. CODEINE [Suspect]
     Active Substance: CODEINE
  469. CODEINE [Suspect]
     Active Substance: CODEINE
  470. CODEINE [Suspect]
     Active Substance: CODEINE
  471. CODEINE [Suspect]
     Active Substance: CODEINE
  472. CODEINE [Suspect]
     Active Substance: CODEINE
     Route: 048
  473. CODEINE [Suspect]
     Active Substance: CODEINE
     Route: 048
  474. DIHYDROERGOTAMINE [Suspect]
     Active Substance: DIHYDROERGOTAMINE
     Indication: Migraine
  475. OXYCODONE HYDROCHLORIDE [Suspect]
     Active Substance: OXYCODONE HYDROCHLORIDE
     Indication: Migraine
     Route: 048
  476. KETAMINE HYDROCHLORIDE [Suspect]
     Active Substance: KETAMINE HYDROCHLORIDE
     Indication: Product used for unknown indication
  477. ESOMEPRAZOLE MAGNESIUM [Suspect]
     Active Substance: ESOMEPRAZOLE MAGNESIUM
     Indication: Product used for unknown indication
     Route: 048
  478. ESOMEPRAZOLE MAGNESIUM [Suspect]
     Active Substance: ESOMEPRAZOLE MAGNESIUM
     Route: 048
  479. ESOMEPRAZOLE MAGNESIUM [Suspect]
     Active Substance: ESOMEPRAZOLE MAGNESIUM
     Route: 048
  480. ESOMEPRAZOLE MAGNESIUM [Suspect]
     Active Substance: ESOMEPRAZOLE MAGNESIUM
     Route: 048
  481. ESOMEPRAZOLE MAGNESIUM [Suspect]
     Active Substance: ESOMEPRAZOLE MAGNESIUM
     Route: 048
  482. ESOMEPRAZOLE MAGNESIUM [Suspect]
     Active Substance: ESOMEPRAZOLE MAGNESIUM
     Route: 048
  483. ESOMEPRAZOLE MAGNESIUM [Suspect]
     Active Substance: ESOMEPRAZOLE MAGNESIUM
     Route: 048
  484. ESOMEPRAZOLE MAGNESIUM [Suspect]
     Active Substance: ESOMEPRAZOLE MAGNESIUM
     Route: 048
  485. ESOMEPRAZOLE MAGNESIUM [Suspect]
     Active Substance: ESOMEPRAZOLE MAGNESIUM
     Route: 048
  486. ESOMEPRAZOLE MAGNESIUM [Suspect]
     Active Substance: ESOMEPRAZOLE MAGNESIUM
     Route: 048
  487. ESOMEPRAZOLE MAGNESIUM [Suspect]
     Active Substance: ESOMEPRAZOLE MAGNESIUM
     Route: 048
  488. ESOMEPRAZOLE MAGNESIUM [Suspect]
     Active Substance: ESOMEPRAZOLE MAGNESIUM
     Route: 048
  489. ESOMEPRAZOLE MAGNESIUM [Suspect]
     Active Substance: ESOMEPRAZOLE MAGNESIUM
     Route: 048
  490. ESOMEPRAZOLE MAGNESIUM [Suspect]
     Active Substance: ESOMEPRAZOLE MAGNESIUM
     Route: 048
  491. ESOMEPRAZOLE MAGNESIUM [Suspect]
     Active Substance: ESOMEPRAZOLE MAGNESIUM
     Route: 048
  492. ESOMEPRAZOLE MAGNESIUM [Suspect]
     Active Substance: ESOMEPRAZOLE MAGNESIUM
     Route: 048
  493. ESOMEPRAZOLE MAGNESIUM [Suspect]
     Active Substance: ESOMEPRAZOLE MAGNESIUM
     Route: 048
  494. ESOMEPRAZOLE MAGNESIUM [Suspect]
     Active Substance: ESOMEPRAZOLE MAGNESIUM
     Route: 048
  495. ESOMEPRAZOLE MAGNESIUM [Suspect]
     Active Substance: ESOMEPRAZOLE MAGNESIUM
     Route: 048
  496. ESOMEPRAZOLE MAGNESIUM [Suspect]
     Active Substance: ESOMEPRAZOLE MAGNESIUM
     Route: 048
  497. ESOMEPRAZOLE MAGNESIUM [Suspect]
     Active Substance: ESOMEPRAZOLE MAGNESIUM
     Route: 048
  498. ESOMEPRAZOLE MAGNESIUM [Suspect]
     Active Substance: ESOMEPRAZOLE MAGNESIUM
     Route: 048
  499. ESOMEPRAZOLE MAGNESIUM [Suspect]
     Active Substance: ESOMEPRAZOLE MAGNESIUM
     Route: 048
  500. ESOMEPRAZOLE MAGNESIUM [Suspect]
     Active Substance: ESOMEPRAZOLE MAGNESIUM
     Route: 048
  501. ESOMEPRAZOLE MAGNESIUM [Suspect]
     Active Substance: ESOMEPRAZOLE MAGNESIUM
     Route: 048
  502. ESOMEPRAZOLE MAGNESIUM [Suspect]
     Active Substance: ESOMEPRAZOLE MAGNESIUM
     Route: 048
  503. ESOMEPRAZOLE MAGNESIUM [Suspect]
     Active Substance: ESOMEPRAZOLE MAGNESIUM
     Route: 048
  504. ESOMEPRAZOLE MAGNESIUM [Suspect]
     Active Substance: ESOMEPRAZOLE MAGNESIUM
     Route: 048
  505. ESOMEPRAZOLE MAGNESIUM [Suspect]
     Active Substance: ESOMEPRAZOLE MAGNESIUM
     Route: 048
  506. ESOMEPRAZOLE MAGNESIUM [Suspect]
     Active Substance: ESOMEPRAZOLE MAGNESIUM
     Route: 048
  507. ESOMEPRAZOLE MAGNESIUM [Suspect]
     Active Substance: ESOMEPRAZOLE MAGNESIUM
     Route: 048
  508. ESOMEPRAZOLE MAGNESIUM [Suspect]
     Active Substance: ESOMEPRAZOLE MAGNESIUM
     Route: 048
  509. ESOMEPRAZOLE MAGNESIUM [Suspect]
     Active Substance: ESOMEPRAZOLE MAGNESIUM
     Route: 048
  510. ESOMEPRAZOLE MAGNESIUM [Suspect]
     Active Substance: ESOMEPRAZOLE MAGNESIUM
     Route: 048
  511. ESOMEPRAZOLE MAGNESIUM [Suspect]
     Active Substance: ESOMEPRAZOLE MAGNESIUM
     Route: 048
  512. ESOMEPRAZOLE MAGNESIUM [Suspect]
     Active Substance: ESOMEPRAZOLE MAGNESIUM
     Route: 048
  513. ESOMEPRAZOLE MAGNESIUM [Suspect]
     Active Substance: ESOMEPRAZOLE MAGNESIUM
     Route: 048
  514. ESOMEPRAZOLE MAGNESIUM [Suspect]
     Active Substance: ESOMEPRAZOLE MAGNESIUM
     Route: 048
  515. ESOMEPRAZOLE MAGNESIUM [Suspect]
     Active Substance: ESOMEPRAZOLE MAGNESIUM
     Route: 048
  516. ESOMEPRAZOLE MAGNESIUM [Suspect]
     Active Substance: ESOMEPRAZOLE MAGNESIUM
     Route: 048
  517. ESOMEPRAZOLE MAGNESIUM [Suspect]
     Active Substance: ESOMEPRAZOLE MAGNESIUM
     Route: 048
  518. ESOMEPRAZOLE MAGNESIUM [Suspect]
     Active Substance: ESOMEPRAZOLE MAGNESIUM
     Route: 048
  519. ESOMEPRAZOLE MAGNESIUM [Suspect]
     Active Substance: ESOMEPRAZOLE MAGNESIUM
     Route: 048
  520. ESOMEPRAZOLE MAGNESIUM [Suspect]
     Active Substance: ESOMEPRAZOLE MAGNESIUM
     Route: 048
  521. ESOMEPRAZOLE MAGNESIUM [Suspect]
     Active Substance: ESOMEPRAZOLE MAGNESIUM
     Route: 048
  522. ESOMEPRAZOLE MAGNESIUM [Suspect]
     Active Substance: ESOMEPRAZOLE MAGNESIUM
     Route: 048
  523. ESOMEPRAZOLE MAGNESIUM [Suspect]
     Active Substance: ESOMEPRAZOLE MAGNESIUM
     Route: 048
  524. ESOMEPRAZOLE MAGNESIUM [Suspect]
     Active Substance: ESOMEPRAZOLE MAGNESIUM
     Route: 048
  525. ESOMEPRAZOLE MAGNESIUM [Suspect]
     Active Substance: ESOMEPRAZOLE MAGNESIUM
     Route: 048
  526. DULOXETINE HYDROCHLORIDE [Suspect]
     Active Substance: DULOXETINE HYDROCHLORIDE
     Indication: Migraine
  527. DULOXETINE HYDROCHLORIDE [Suspect]
     Active Substance: DULOXETINE HYDROCHLORIDE
  528. DULOXETINE HYDROCHLORIDE [Suspect]
     Active Substance: DULOXETINE HYDROCHLORIDE
  529. DULOXETINE HYDROCHLORIDE [Suspect]
     Active Substance: DULOXETINE HYDROCHLORIDE
  530. DULOXETINE HYDROCHLORIDE [Suspect]
     Active Substance: DULOXETINE HYDROCHLORIDE
  531. DULOXETINE HYDROCHLORIDE [Suspect]
     Active Substance: DULOXETINE HYDROCHLORIDE
  532. DULOXETINE HYDROCHLORIDE [Suspect]
     Active Substance: DULOXETINE HYDROCHLORIDE
  533. DULOXETINE HYDROCHLORIDE [Suspect]
     Active Substance: DULOXETINE HYDROCHLORIDE
  534. DULOXETINE HYDROCHLORIDE [Suspect]
     Active Substance: DULOXETINE HYDROCHLORIDE
  535. DULOXETINE HYDROCHLORIDE [Suspect]
     Active Substance: DULOXETINE HYDROCHLORIDE
  536. DULOXETINE HYDROCHLORIDE [Suspect]
     Active Substance: DULOXETINE HYDROCHLORIDE
  537. DULOXETINE HYDROCHLORIDE [Suspect]
     Active Substance: DULOXETINE HYDROCHLORIDE
  538. DULOXETINE HYDROCHLORIDE [Suspect]
     Active Substance: DULOXETINE HYDROCHLORIDE
  539. DULOXETINE HYDROCHLORIDE [Suspect]
     Active Substance: DULOXETINE HYDROCHLORIDE
  540. DULOXETINE HYDROCHLORIDE [Suspect]
     Active Substance: DULOXETINE HYDROCHLORIDE
  541. DULOXETINE HYDROCHLORIDE [Suspect]
     Active Substance: DULOXETINE HYDROCHLORIDE
  542. DULOXETINE HYDROCHLORIDE [Suspect]
     Active Substance: DULOXETINE HYDROCHLORIDE
  543. DULOXETINE HYDROCHLORIDE [Suspect]
     Active Substance: DULOXETINE HYDROCHLORIDE
  544. DULOXETINE HYDROCHLORIDE [Suspect]
     Active Substance: DULOXETINE HYDROCHLORIDE
  545. DULOXETINE HYDROCHLORIDE [Suspect]
     Active Substance: DULOXETINE HYDROCHLORIDE
  546. DULOXETINE HYDROCHLORIDE [Suspect]
     Active Substance: DULOXETINE HYDROCHLORIDE
  547. DULOXETINE HYDROCHLORIDE [Suspect]
     Active Substance: DULOXETINE HYDROCHLORIDE
  548. DULOXETINE HYDROCHLORIDE [Suspect]
     Active Substance: DULOXETINE HYDROCHLORIDE
  549. DULOXETINE HYDROCHLORIDE [Suspect]
     Active Substance: DULOXETINE HYDROCHLORIDE
  550. DULOXETINE HYDROCHLORIDE [Suspect]
     Active Substance: DULOXETINE HYDROCHLORIDE
  551. DULOXETINE HYDROCHLORIDE [Suspect]
     Active Substance: DULOXETINE HYDROCHLORIDE
  552. DULOXETINE HYDROCHLORIDE [Suspect]
     Active Substance: DULOXETINE HYDROCHLORIDE
  553. DULOXETINE HYDROCHLORIDE [Suspect]
     Active Substance: DULOXETINE HYDROCHLORIDE
  554. DULOXETINE HYDROCHLORIDE [Suspect]
     Active Substance: DULOXETINE HYDROCHLORIDE
  555. DULOXETINE HYDROCHLORIDE [Suspect]
     Active Substance: DULOXETINE HYDROCHLORIDE
  556. DULOXETINE HYDROCHLORIDE [Suspect]
     Active Substance: DULOXETINE HYDROCHLORIDE
  557. DULOXETINE HYDROCHLORIDE [Suspect]
     Active Substance: DULOXETINE HYDROCHLORIDE
  558. DULOXETINE HYDROCHLORIDE [Suspect]
     Active Substance: DULOXETINE HYDROCHLORIDE
  559. DULOXETINE HYDROCHLORIDE [Suspect]
     Active Substance: DULOXETINE HYDROCHLORIDE
  560. DULOXETINE HYDROCHLORIDE [Suspect]
     Active Substance: DULOXETINE HYDROCHLORIDE
  561. DULOXETINE HYDROCHLORIDE [Suspect]
     Active Substance: DULOXETINE HYDROCHLORIDE
  562. ACETAMINOPHEN [Suspect]
     Active Substance: ACETAMINOPHEN
     Indication: Product used for unknown indication
  563. ACETAMINOPHEN [Suspect]
     Active Substance: ACETAMINOPHEN
     Indication: Migraine
  564. ACETAMINOPHEN [Suspect]
     Active Substance: ACETAMINOPHEN
  565. ACETAMINOPHEN [Suspect]
     Active Substance: ACETAMINOPHEN
  566. ACETAMINOPHEN [Suspect]
     Active Substance: ACETAMINOPHEN
  567. ACETAMINOPHEN [Suspect]
     Active Substance: ACETAMINOPHEN
  568. OXYCODONE AND ACETAMINOPHEN [Suspect]
     Active Substance: ACETAMINOPHEN\OXYCODONE HYDROCHLORIDE
     Indication: Migraine
  569. OXYCODONE AND ACETAMINOPHEN [Suspect]
     Active Substance: ACETAMINOPHEN\OXYCODONE HYDROCHLORIDE
  570. OXYCODONE AND ACETAMINOPHEN [Suspect]
     Active Substance: ACETAMINOPHEN\OXYCODONE HYDROCHLORIDE
  571. OXYCODONE AND ACETAMINOPHEN [Suspect]
     Active Substance: ACETAMINOPHEN\OXYCODONE HYDROCHLORIDE
  572. OXYCODONE AND ACETAMINOPHEN [Suspect]
     Active Substance: ACETAMINOPHEN\OXYCODONE HYDROCHLORIDE
  573. BOTULINUM TOXIN TYPE A [Suspect]
     Active Substance: BOTULINUM TOXIN TYPE A
     Indication: Product used for unknown indication
     Route: 030
  574. BOTULINUM TOXIN TYPE A [Suspect]
     Active Substance: BOTULINUM TOXIN TYPE A
  575. HYDROMORPHONE HYDROCHLORIDE [Suspect]
     Active Substance: HYDROMORPHONE HYDROCHLORIDE
     Indication: Product used for unknown indication
  576. ACETAMINOPHEN\TRAMADOL [Suspect]
     Active Substance: ACETAMINOPHEN\TRAMADOL
     Indication: Migraine
  577. ACETAMINOPHEN\TRAMADOL [Suspect]
     Active Substance: ACETAMINOPHEN\TRAMADOL
  578. ACETAMINOPHEN\TRAMADOL [Suspect]
     Active Substance: ACETAMINOPHEN\TRAMADOL
  579. ACETAMINOPHEN\TRAMADOL [Suspect]
     Active Substance: ACETAMINOPHEN\TRAMADOL
  580. NORTRIPTYLINE HYDROCHLORIDE [Suspect]
     Active Substance: NORTRIPTYLINE HYDROCHLORIDE
     Indication: Product used for unknown indication
     Route: 030
  581. ACETAMINOPHEN\TRAMADOL HYDROCHLORIDE [Suspect]
     Active Substance: ACETAMINOPHEN\TRAMADOL HYDROCHLORIDE
     Indication: Migraine
  582. ACETAMINOPHEN\CAFFEINE\CHLORPHENIRAMINE\PHENYLPROPANOLAMINE [Suspect]
     Active Substance: ACETAMINOPHEN\CAFFEINE\CHLORPHENIRAMINE\PHENYLPROPANOLAMINE
     Indication: Migraine
  583. ACETAMINOPHEN\CAFFEINE\CHLORPHENIRAMINE\PHENYLPROPANOLAMINE [Suspect]
     Active Substance: ACETAMINOPHEN\CAFFEINE\CHLORPHENIRAMINE\PHENYLPROPANOLAMINE
  584. ACETAMINOPHEN\CAFFEINE\CHLORPHENIRAMINE\PHENYLPROPANOLAMINE [Suspect]
     Active Substance: ACETAMINOPHEN\CAFFEINE\CHLORPHENIRAMINE\PHENYLPROPANOLAMINE
  585. ACETAMINOPHEN\CAFFEINE\CHLORPHENIRAMINE\PHENYLPROPANOLAMINE [Suspect]
     Active Substance: ACETAMINOPHEN\CAFFEINE\CHLORPHENIRAMINE\PHENYLPROPANOLAMINE
  586. ACETAMINOPHEN\CAFFEINE\CHLORPHENIRAMINE\PHENYLPROPANOLAMINE [Suspect]
     Active Substance: ACETAMINOPHEN\CAFFEINE\CHLORPHENIRAMINE\PHENYLPROPANOLAMINE
  587. ACETAMINOPHEN\CAFFEINE\CHLORPHENIRAMINE\PHENYLPROPANOLAMINE [Suspect]
     Active Substance: ACETAMINOPHEN\CAFFEINE\CHLORPHENIRAMINE\PHENYLPROPANOLAMINE
  588. ACETAMINOPHEN\CAFFEINE\CHLORPHENIRAMINE\PHENYLPROPANOLAMINE [Suspect]
     Active Substance: ACETAMINOPHEN\CAFFEINE\CHLORPHENIRAMINE\PHENYLPROPANOLAMINE
  589. ACETAMINOPHEN\CAFFEINE\CHLORPHENIRAMINE\PHENYLPROPANOLAMINE [Suspect]
     Active Substance: ACETAMINOPHEN\CAFFEINE\CHLORPHENIRAMINE\PHENYLPROPANOLAMINE
  590. ACETAMINOPHEN\CAFFEINE\CHLORPHENIRAMINE\PHENYLPROPANOLAMINE [Suspect]
     Active Substance: ACETAMINOPHEN\CAFFEINE\CHLORPHENIRAMINE\PHENYLPROPANOLAMINE
  591. ACETAMINOPHEN\CAFFEINE\CHLORPHENIRAMINE\PHENYLPROPANOLAMINE [Suspect]
     Active Substance: ACETAMINOPHEN\CAFFEINE\CHLORPHENIRAMINE\PHENYLPROPANOLAMINE
  592. ACETAMINOPHEN\CAFFEINE\CHLORPHENIRAMINE\PHENYLPROPANOLAMINE [Suspect]
     Active Substance: ACETAMINOPHEN\CAFFEINE\CHLORPHENIRAMINE\PHENYLPROPANOLAMINE
  593. TRIACETIN [Suspect]
     Active Substance: TRIACETIN
     Indication: Migraine
  594. ADVIL [Suspect]
     Active Substance: IBUPROFEN
     Indication: Product used for unknown indication
  595. NAPROXEN [Suspect]
     Active Substance: NAPROXEN
     Indication: Product used for unknown indication
     Route: 048
  596. NAPROXEN [Suspect]
     Active Substance: NAPROXEN
     Route: 048
  597. NAPROXEN [Suspect]
     Active Substance: NAPROXEN
     Route: 048
  598. NAPROXEN [Suspect]
     Active Substance: NAPROXEN
     Route: 048
  599. NAPROXEN [Suspect]
     Active Substance: NAPROXEN
     Route: 048
  600. NAPROXEN [Suspect]
     Active Substance: NAPROXEN
     Route: 048
  601. NAPROXEN [Suspect]
     Active Substance: NAPROXEN
     Route: 048
  602. NAPROXEN [Suspect]
     Active Substance: NAPROXEN
     Route: 048
  603. NAPROXEN [Suspect]
     Active Substance: NAPROXEN
     Route: 048
  604. NAPROXEN [Suspect]
     Active Substance: NAPROXEN
     Route: 048
  605. NAPROXEN [Suspect]
     Active Substance: NAPROXEN
     Route: 048
  606. NAPROXEN [Suspect]
     Active Substance: NAPROXEN
     Route: 048
  607. NAPROXEN [Suspect]
     Active Substance: NAPROXEN
     Route: 048
  608. NAPROXEN [Suspect]
     Active Substance: NAPROXEN
     Route: 048
  609. NAPROXEN [Suspect]
     Active Substance: NAPROXEN
     Route: 048
  610. NAPROXEN [Suspect]
     Active Substance: NAPROXEN
     Route: 048
  611. VENLAFAXINE HYDROCHLORIDE [Suspect]
     Active Substance: VENLAFAXINE HYDROCHLORIDE
     Indication: Migraine
  612. TRIACETIN [Suspect]
     Active Substance: TRIACETIN
     Indication: Product used for unknown indication
  613. TRIACETIN [Suspect]
     Active Substance: TRIACETIN
     Indication: Migraine
  614. ACETAMINOPHEN AND CODEINE [Suspect]
     Active Substance: ACETAMINOPHEN\CODEINE PHOSPHATE
     Indication: Product used for unknown indication
  615. ACETAMINOPHEN AND CODEINE [Suspect]
     Active Substance: ACETAMINOPHEN\CODEINE PHOSPHATE
  616. ACETAMINOPHEN AND CODEINE [Suspect]
     Active Substance: ACETAMINOPHEN\CODEINE PHOSPHATE
  617. TRIAMCINOLONE ACETONIDE [Suspect]
     Active Substance: TRIAMCINOLONE ACETONIDE
     Indication: Migraine
  618. TRIAMCINOLONE ACETONIDE [Suspect]
     Active Substance: TRIAMCINOLONE ACETONIDE
  619. CAFFEINE [Suspect]
     Active Substance: CAFFEINE
     Indication: Migraine
  620. CAFFEINE [Suspect]
     Active Substance: CAFFEINE
  621. CAFFEINE [Suspect]
     Active Substance: CAFFEINE
  622. CAFFEINE [Suspect]
     Active Substance: CAFFEINE
  623. CAFFEINE [Suspect]
     Active Substance: CAFFEINE
  624. CAFFEINE [Suspect]
     Active Substance: CAFFEINE
  625. CAFFEINE [Suspect]
     Active Substance: CAFFEINE
  626. CAFFEINE [Suspect]
     Active Substance: CAFFEINE
  627. CAFFEINE [Suspect]
     Active Substance: CAFFEINE
  628. CAFFEINE [Suspect]
     Active Substance: CAFFEINE
  629. CAFFEINE [Suspect]
     Active Substance: CAFFEINE
  630. CODEINE SULFATE [Suspect]
     Active Substance: CODEINE SULFATE
     Indication: Migraine
     Route: 048
  631. CODEINE SULFATE [Suspect]
     Active Substance: CODEINE SULFATE
     Route: 048
  632. ACETAMINOPHEN [Suspect]
     Active Substance: ACETAMINOPHEN
     Indication: Product used for unknown indication
  633. ACETAMINOPHEN [Suspect]
     Active Substance: ACETAMINOPHEN
  634. ACETAMINOPHEN [Suspect]
     Active Substance: ACETAMINOPHEN
  635. MEJORALITO [Suspect]
     Active Substance: ACETAMINOPHEN
     Indication: Product used for unknown indication

REACTIONS (8)
  - Nephrolithiasis [Unknown]
  - Nightmare [Unknown]
  - Product use in unapproved indication [Unknown]
  - Off label use [Unknown]
  - Sedation [Unknown]
  - Drug ineffective [Unknown]
  - Hyperhidrosis [Unknown]
  - Nausea [Unknown]
